FAERS Safety Report 16754256 (Version 4)
Quarter: 2019Q4

REPORT INFORMATION
  Report Type: Spontaneous
  Country: US (occurrence: US)
  Receive Date: 20190829
  Receipt Date: 20191011
  Transmission Date: 20200122
  Serious: No
  Sender: FDA-Public Use
  Company Number: US-HTU-2019US019088

PATIENT
  Sex: Female

DRUGS (1)
  1. VALCHLOR [Suspect]
     Active Substance: MECHLORETHAMINE
     Indication: CUTANEOUS T-CELL LYMPHOMA
     Dosage: THIN FILM, SINGLE
     Route: 061
     Dates: start: 201904

REACTIONS (9)
  - Application site exfoliation [Unknown]
  - Skin discolouration [Recovered/Resolved]
  - Skin irritation [Recovering/Resolving]
  - Skin erosion [Recovered/Resolved]
  - Skin burning sensation [Recovered/Resolved]
  - Scab [Recovering/Resolving]
  - Application site erythema [Unknown]
  - Pruritus [Recovered/Resolved]
  - Rash [Recovering/Resolving]
